FAERS Safety Report 23494867 (Version 6)
Quarter: 2024Q4

REPORT INFORMATION
  Report Type: Spontaneous
  Country: US (occurrence: US)
  Receive Date: 20240207
  Receipt Date: 20241112
  Transmission Date: 20250115
  Serious: Yes (Death, Other)
  Sender: ALEXION PHARMACEUTICALS
  Company Number: 2024A031334

PATIENT
  Age: 1 Month
  Weight: 2.76 kg

DRUGS (2)
  1. BEYFORTUS [Suspect]
     Active Substance: NIRSEVIMAB-ALIP
     Indication: Antiviral prophylaxis
     Dosage: 50 MG, TOTAL
  2. ABTEI VITAMIN D3 [Concomitant]
     Dosage: UNK

REACTIONS (2)
  - Sudden infant death syndrome [Fatal]
  - Respiratory arrest [Fatal]
